FAERS Safety Report 17471501 (Version 3)
Quarter: 2020Q2

REPORT INFORMATION
  Report Type: Spontaneous
  Country: CA (occurrence: CA)
  Receive Date: 20200228
  Receipt Date: 20200505
  Transmission Date: 20200713
  Serious: No
  Sender: FDA-Public Use
  Company Number: CA-CELLTRION INC.-2019CA018234

PATIENT

DRUGS (24)
  1. INFLECTRA [Suspect]
     Active Substance: INFLIXIMAB-DYYB
     Indication: PSORIASIS
     Dosage: 1000 MG, EVERY 5 WEEKS
     Route: 042
     Dates: start: 20181207
  2. INFLECTRA [Suspect]
     Active Substance: INFLIXIMAB-DYYB
     Dosage: 1200 MG, EVERY 5 WEEKS
     Route: 042
     Dates: start: 20190813
  3. INFLECTRA [Suspect]
     Active Substance: INFLIXIMAB-DYYB
     Dosage: 1200 MG, EVERY 5 WEEKS
     Route: 042
     Dates: start: 20191125
  4. INFLECTRA [Suspect]
     Active Substance: INFLIXIMAB-DYYB
     Dosage: 1200 MG, EVERY 5 WEEKS
     Route: 042
     Dates: start: 20200324
  5. INFLECTRA [Suspect]
     Active Substance: INFLIXIMAB-DYYB
     Dosage: 1200 MG, EVERY 5 WEEKS
     Route: 042
     Dates: start: 20200427
  6. INFLECTRA [Suspect]
     Active Substance: INFLIXIMAB-DYYB
     Dosage: 1200 MG, EVERY 5 WEEKS
     Route: 042
     Dates: start: 20191230
  7. INFLECTRA [Suspect]
     Active Substance: INFLIXIMAB-DYYB
     Dosage: 1200 MG, EVERY 5 WEEKS
     Route: 042
     Dates: start: 20200427
  8. MESALAMINE. [Concomitant]
     Active Substance: MESALAMINE
     Dosage: 800 MG, 2X/DAY
     Route: 065
     Dates: start: 201609
  9. ACETAMINOPHEN. [Concomitant]
     Active Substance: ACETAMINOPHEN
     Dosage: 975 MG
     Route: 048
     Dates: start: 20190429
  10. INFLECTRA [Suspect]
     Active Substance: INFLIXIMAB-DYYB
     Indication: COLITIS ULCERATIVE
     Dosage: 1000 MG, EVERY 5 WEEKS
     Route: 042
     Dates: start: 20170324, end: 20190219
  11. INFLECTRA [Suspect]
     Active Substance: INFLIXIMAB-DYYB
     Dosage: 1200 MG, EVERY 5 WEEKS
     Route: 042
     Dates: start: 20190605
  12. INFLECTRA [Suspect]
     Active Substance: INFLIXIMAB-DYYB
     Dosage: 1200 MG, EVERY 5 WEEKS
     Route: 042
     Dates: start: 20200427
  13. ACETAMINOPHEN. [Concomitant]
     Active Substance: ACETAMINOPHEN
     Dosage: 975 MG
     Route: 048
     Dates: start: 20190813
  14. INFLECTRA [Suspect]
     Active Substance: INFLIXIMAB-DYYB
     Dosage: 1200 MG, EVERY 5 WEEKS
     Route: 042
     Dates: start: 20190325
  15. ACETAMINOPHEN. [Concomitant]
     Active Substance: ACETAMINOPHEN
     Indication: PREMEDICATION
     Dosage: 975 MG
     Route: 048
     Dates: start: 20190325
  16. INFLECTRA [Suspect]
     Active Substance: INFLIXIMAB-DYYB
     Dosage: 1200 MG, EVERY 5 WEEKS
     Route: 042
     Dates: start: 20190429
  17. INFLECTRA [Suspect]
     Active Substance: INFLIXIMAB-DYYB
     Dosage: 1200 MG, EVERY 5 WEEKS
     Route: 042
     Dates: start: 20200215
  18. METHOTREXATE. [Concomitant]
     Active Substance: METHOTREXATE
     Dosage: 6 DF (TABLET), WEEKLY
     Route: 065
     Dates: start: 20190813
  19. INFLECTRA [Suspect]
     Active Substance: INFLIXIMAB-DYYB
     Dosage: 1000 MG, EVERY 5 WEEKS
     Route: 042
     Dates: start: 20190114
  20. INFLECTRA [Suspect]
     Active Substance: INFLIXIMAB-DYYB
     Dosage: 1200 MG, EVERY 5 WEEKS
     Route: 042
     Dates: start: 20191125
  21. INFLECTRA [Suspect]
     Active Substance: INFLIXIMAB-DYYB
     Dosage: 1000 MG, EVERY 5 WEEKS
     Route: 042
     Dates: start: 20190219, end: 20190219
  22. INFLECTRA [Suspect]
     Active Substance: INFLIXIMAB-DYYB
     Dosage: 1200 MG, EVERY 5 WEEKS
     Route: 042
     Dates: start: 20191024
  23. METHOTREXATE. [Concomitant]
     Active Substance: METHOTREXATE
     Dosage: 6 DF (TABLET), WEEKLY
     Route: 065
     Dates: start: 20170201
  24. ACETAMINOPHEN. [Concomitant]
     Active Substance: ACETAMINOPHEN
     Dosage: 975 MG
     Route: 048
     Dates: start: 20200427

REACTIONS (5)
  - Condition aggravated [Unknown]
  - Off label use [Unknown]
  - Inappropriate schedule of product administration [Unknown]
  - Blood pressure increased [Unknown]
  - Heart rate increased [Unknown]

NARRATIVE: CASE EVENT DATE: 20170324
